FAERS Safety Report 6898282-X (Version None)
Quarter: 2010Q3

REPORT INFORMATION
  Report Type: 
  Country: None (occurrence: None)
  Receive Date: 20100802
  Receipt Date: 20070930
  Transmission Date: 20110219
  Serious: No
  Sender: FDA-Public Use
  Company Number: US-PFIZER INC-2007081555

PATIENT
  Sex: Female

DRUGS (3)
  1. LYRICA [Suspect]
     Indication: NEURALGIA
     Route: 048
     Dates: start: 20060501, end: 20070928
  2. LYRICA [Suspect]
  3. AMITRIPTYLINE HYDROCHLORIDE [Concomitant]
     Route: 048
     Dates: start: 20060501

REACTIONS (5)
  - ANXIETY [None]
  - COLD SWEAT [None]
  - HYPERHIDROSIS [None]
  - NERVOUSNESS [None]
  - WEIGHT INCREASED [None]
